FAERS Safety Report 19351668 (Version 1)
Quarter: 2021Q2

REPORT INFORMATION
  Report Type: Spontaneous
  Country: LB (occurrence: LB)
  Receive Date: 20210531
  Receipt Date: 20210531
  Transmission Date: 20210717
  Serious: Yes (Death, Hospitalization)
  Sender: FDA-Public Use
  Company Number: LB-ASTRAZENECA-2021A471117

PATIENT
  Age: 80 Year
  Sex: Female

DRUGS (1)
  1. TAGRISSO [Suspect]
     Active Substance: OSIMERTINIB
     Indication: GLOMERULAR FILTRATION RATE
     Route: 048
     Dates: start: 20191121, end: 20210521

REACTIONS (4)
  - Cardiac disorder [Fatal]
  - Dyspnoea [Fatal]
  - Lung disorder [Fatal]
  - Back pain [Fatal]

NARRATIVE: CASE EVENT DATE: 20210521
